FAERS Safety Report 14768036 (Version 1)
Quarter: 2018Q2

REPORT INFORMATION
  Report Type: Spontaneous
  Country: DE (occurrence: DE)
  Receive Date: 20180417
  Receipt Date: 20180417
  Transmission Date: 20180711
  Serious: Yes (Hospitalization)
  Sender: FDA-Public Use
  Company Number: PHHY2018DE061418

PATIENT
  Sex: Female

DRUGS (2)
  1. LEVODOPA+CARBIDOPA [Suspect]
     Active Substance: CARBIDOPA\LEVODOPA
     Indication: DYSTONIA
     Route: 065
  2. VALPROATE [Suspect]
     Active Substance: VALPROIC ACID
     Indication: FOETAL EXPOSURE DURING PREGNANCY
     Route: 064

REACTIONS (8)
  - Neonatal respiratory distress [Recovering/Resolving]
  - Foetal exposure during pregnancy [Unknown]
  - Foetal anticonvulsant syndrome [Recovering/Resolving]
  - Irritability [Recovering/Resolving]
  - Dystonia [Recovering/Resolving]
  - Micrognathia [Recovering/Resolving]
  - Muscle spasms [Recovering/Resolving]
  - Drug ineffective [Unknown]
